FAERS Safety Report 17777090 (Version 2)
Quarter: 2021Q1

REPORT INFORMATION
  Report Type: Report from Study
  Country: US (occurrence: US)
  Receive Date: 20200513
  Receipt Date: 20210223
  Transmission Date: 20210419
  Serious: No
  Sender: FDA-Public Use
  Company Number: US-ACADIA PHARMACEUTICALS INC.-ACA-2019-014305

PATIENT
  Sex: Female

DRUGS (2)
  1. METHOTREXATE. [Suspect]
     Active Substance: METHOTREXATE
     Indication: PRODUCT USED FOR UNKNOWN INDICATION
     Dosage: ONCE WEEKLY INJECTION
     Route: 065
     Dates: end: 20190928
  2. NUPLAZID [Suspect]
     Active Substance: PIMAVANSERIN TARTRATE
     Indication: PARKINSON^S DISEASE
     Dosage: 34 MG, QD
     Route: 048
     Dates: start: 20190911

REACTIONS (7)
  - Fluid retention [Unknown]
  - Contusion [Recovering/Resolving]
  - Rash [Recovering/Resolving]
  - Tenderness [Unknown]
  - Peripheral swelling [Unknown]
  - Skin atrophy [Unknown]
  - Constipation [Unknown]

NARRATIVE: CASE EVENT DATE: 2019
